FAERS Safety Report 12534058 (Version 1)
Quarter: 2016Q3

REPORT INFORMATION
  Report Type: Spontaneous
  Country: US (occurrence: US)
  Receive Date: 20160706
  Receipt Date: 20160706
  Transmission Date: 20161109
  Serious: No
  Sender: FDA-Public Use
  Company Number: US-PURDUE-USA-2016-0130101

PATIENT
  Age: 79 Year
  Sex: Female

DRUGS (4)
  1. BUTRANS [Suspect]
     Active Substance: BUPRENORPHINE
     Dosage: 20 MCG/HR, WEEKLY
     Route: 062
     Dates: start: 201509, end: 201602
  2. BUTRANS [Suspect]
     Active Substance: BUPRENORPHINE
     Indication: PAIN
     Dosage: 5 MCG/HR, WEEKLY
     Route: 062
     Dates: start: 20160405
  3. BUTRANS [Suspect]
     Active Substance: BUPRENORPHINE
     Dosage: 10 MCG/HR, WEEKLY
     Route: 062
     Dates: start: 201508, end: 201509
  4. BUTRANS [Suspect]
     Active Substance: BUPRENORPHINE
     Dosage: 10 MCG/HR, WEEKLY
     Route: 062
     Dates: start: 201603, end: 20160405

REACTIONS (9)
  - Abdominal pain upper [Recovered/Resolved]
  - Abdominal pain [Not Recovered/Not Resolved]
  - Constipation [Not Recovered/Not Resolved]
  - Drug withdrawal syndrome [Recovered/Resolved]
  - Feeling abnormal [Unknown]
  - Nausea [Recovered/Resolved]
  - Muscle spasms [Recovered/Resolved]
  - Somnolence [Recovered/Resolved]
  - Drug ineffective [Recovered/Resolved]

NARRATIVE: CASE EVENT DATE: 201508
